FAERS Safety Report 6210907-0 (Version None)
Quarter: 2009Q2

REPORT INFORMATION
  Report Type: 
  Country: None (occurrence: None)
  Receive Date: 20090601
  Receipt Date: 20090511
  Transmission Date: 20091009
  Serious: Yes (Hospitalization)
  Sender: FDA-Public Use
  Company Number: PHHY2009JP18210

PATIENT
  Sex: Male

DRUGS (5)
  1. DIOVAN T30230+TAB+HY [Suspect]
     Dosage: 80 MG, QD
     Route: 048
     Dates: start: 20080301
  2. BAYLOTENSIN [Concomitant]
     Indication: HYPERTENSION
     Dosage: 10 MG/DAY
     Route: 048
     Dates: start: 20030415
  3. BUFFERIN [Concomitant]
     Dosage: 81 MG
     Route: 048
     Dates: start: 20010801
  4. BIOFERMIN R [Concomitant]
     Dosage: 3 DF, UNK
     Route: 048
     Dates: start: 20071221, end: 20080229
  5. PLAVIX [Concomitant]
     Dosage: 1 DF
     Route: 048
     Dates: start: 20080416

REACTIONS (4)
  - ANGINA PECTORIS [None]
  - ARRHYTHMIA [None]
  - CORONARY ARTERY STENOSIS [None]
  - STENT PLACEMENT [None]
